FAERS Safety Report 24630292 (Version 5)
Quarter: 2025Q2

REPORT INFORMATION
  Report Type: Report from Study
  Country: US (occurrence: US)
  Receive Date: 20241118
  Receipt Date: 20250617
  Transmission Date: 20250717
  Serious: No
  Sender: DECIPHERA PHARMACEUTICALS
  Company Number: US-DECIPHERA PHARMACEUTICALS LLC-2024US000938

PATIENT
  Age: 65 Year
  Sex: Male

DRUGS (3)
  1. QINLOCK [Suspect]
     Active Substance: RIPRETINIB
     Indication: Malignant connective tissue neoplasm
     Dosage: 150 MILLIGRAM, QD, (TOOK 3 TABLETS OF 50 MG)
     Route: 048
     Dates: start: 20241008, end: 2024
  2. QINLOCK [Suspect]
     Active Substance: RIPRETINIB
     Indication: Soft tissue sarcoma
     Dosage: 100 MILLIGRAM, QD (TOOK 2 TABLETS OF 50 MG)
     Route: 048
     Dates: start: 2024, end: 2024
  3. QINLOCK [Suspect]
     Active Substance: RIPRETINIB
     Dosage: 150 MILLIGRAM, QD
     Route: 048

REACTIONS (13)
  - Muscle fatigue [Unknown]
  - Skin disorder [Unknown]
  - Plicated tongue [Unknown]
  - Hair colour changes [Unknown]
  - Hyperkeratosis [Unknown]
  - Blood pressure fluctuation [Unknown]
  - Gait disturbance [Unknown]
  - Haemoglobin abnormal [Unknown]
  - Blood phosphorus decreased [Unknown]
  - Dry skin [Unknown]
  - Pruritus [Unknown]
  - Alopecia [Recovering/Resolving]
  - Product use in unapproved indication [Unknown]

NARRATIVE: CASE EVENT DATE: 20240101
